FAERS Safety Report 18013207 (Version 3)
Quarter: 2020Q4

REPORT INFORMATION
  Report Type: Spontaneous
  Country: US (occurrence: US)
  Receive Date: 20200713
  Receipt Date: 20201222
  Transmission Date: 20210113
  Serious: No
  Sender: FDA-Public Use
  Company Number: US-PFIZER INC-2020264994

PATIENT
  Age: 66 Year
  Sex: Female
  Weight: 74.84 kg

DRUGS (3)
  1. IBRANCE [Suspect]
     Active Substance: PALBOCICLIB
     Dosage: 75 MG (WITH WATER FOR 21 DAYS)
  2. IBRANCE [Suspect]
     Active Substance: PALBOCICLIB
     Indication: BREAST CANCER METASTATIC
     Dosage: 125 MG (21 PILLS)
  3. IBRANCE [Suspect]
     Active Substance: PALBOCICLIB
     Dosage: 100 MG (21 COUNT)

REACTIONS (4)
  - White blood cell count abnormal [Unknown]
  - Alopecia [Not Recovered/Not Resolved]
  - Blood count abnormal [Unknown]
  - Neutrophil count decreased [Unknown]
